FAERS Safety Report 17519629 (Version 4)
Quarter: 2020Q4

REPORT INFORMATION
  Report Type: Spontaneous
  Country: JP (occurrence: JP)
  Receive Date: 20200310
  Receipt Date: 20201015
  Transmission Date: 20210113
  Serious: Yes (Hospitalization)
  Sender: FDA-Public Use
  Company Number: JP-UCBSA-2020009567

PATIENT
  Age: 72 Year
  Sex: Male

DRUGS (5)
  1. E KEPPRA [Suspect]
     Active Substance: LEVETIRACETAM
     Indication: EPILEPSY
     Dosage: 1000MG DAILY
     Route: 048
  2. PERAMPANEL [Concomitant]
     Active Substance: PERAMPANEL
     Indication: PRODUCT USED FOR UNKNOWN INDICATION
     Dosage: UNK
  3. E KEPPRA [Suspect]
     Active Substance: LEVETIRACETAM
     Dosage: 2000MG DAILY
     Route: 048
     Dates: start: 20200112, end: 20200228
  4. E KEPPRA [Suspect]
     Active Substance: LEVETIRACETAM
     Dosage: 3000MG DAILY
     Route: 048
     Dates: start: 20200229
  5. E KEPPRA [Concomitant]
     Active Substance: LEVETIRACETAM
     Indication: EPILEPSY
     Dosage: 1000MG DAILY
     Route: 041
     Dates: start: 20200227, end: 20200228

REACTIONS (3)
  - Nausea [Unknown]
  - Epilepsy [Unknown]
  - Malaise [Unknown]

NARRATIVE: CASE EVENT DATE: 20200225
